FAERS Safety Report 13470636 (Version 9)
Quarter: 2018Q1

REPORT INFORMATION
  Report Type: Report from Study
  Country: CO (occurrence: CO)
  Receive Date: 20170424
  Receipt Date: 20180207
  Transmission Date: 20180508
  Serious: Yes (Other)
  Sender: FDA-Public Use
  Company Number: CO-ROCHE-1908406

PATIENT
  Age: 75 Year
  Sex: Female

DRUGS (5)
  1. HERCEPTIN [Suspect]
     Active Substance: TRASTUZUMAB
     Dosage: 600 MG EVERY 28 DAYS
     Route: 058
     Dates: start: 20170613, end: 20171010
  2. HERCEPTIN [Suspect]
     Active Substance: TRASTUZUMAB
     Indication: BREAST CANCER
     Dosage: 440 MG EVERY 21 DAYS
     Route: 042
     Dates: start: 20151114, end: 20170315
  3. TRAMADOL. [Suspect]
     Active Substance: TRAMADOL
     Indication: MYALGIA
     Route: 065
  4. ALENDRONATE [Concomitant]
     Active Substance: ALENDRONATE SODIUM
  5. HERCEPTIN [Suspect]
     Active Substance: TRASTUZUMAB
     Indication: BREAST CANCER
     Dosage: 600 MG EVERY 28 DAYS
     Route: 058
     Dates: start: 20161215, end: 20161215

REACTIONS (15)
  - Nephrolithiasis [Recovering/Resolving]
  - Asthenia [Recovered/Resolved]
  - Fracture [Recovered/Resolved with Sequelae]
  - Headache [Recovered/Resolved]
  - Hypertriglyceridaemia [Unknown]
  - Hypoacusis [Not Recovered/Not Resolved]
  - Musculoskeletal stiffness [Recovered/Resolved]
  - Myalgia [Recovered/Resolved]
  - Paraesthesia [Recovered/Resolved]
  - Anxiety [Recovered/Resolved]
  - Vision blurred [Recovered/Resolved with Sequelae]
  - Tremor [Recovered/Resolved]
  - Insomnia [Recovered/Resolved]
  - Hypercholesterolaemia [Recovering/Resolving]
  - Hypotension [Recovered/Resolved]

NARRATIVE: CASE EVENT DATE: 201705
